FAERS Safety Report 9285090 (Version 15)
Quarter: 2023Q4

REPORT INFORMATION
  Report Type: Other
  Country: CA (occurrence: CA)
  Receive Date: 20130513
  Receipt Date: 20231215
  Transmission Date: 20240110
  Serious: Yes (Hospitalization, Other)
  Sender: FDA-Public Use
  Company Number: CA-ROCHE-1223338

PATIENT
  Age: 58 Year
  Sex: Female

DRUGS (13)
  1. XOLAIR [Suspect]
     Active Substance: OMALIZUMAB
     Indication: Asthma
     Route: 058
     Dates: start: 20120816
  2. XOLAIR [Suspect]
     Active Substance: OMALIZUMAB
     Route: 058
     Dates: start: 20130815
  3. XOLAIR [Suspect]
     Active Substance: OMALIZUMAB
     Route: 058
     Dates: start: 2019
  4. XOLAIR [Suspect]
     Active Substance: OMALIZUMAB
     Route: 065
  5. XOLAIR [Suspect]
     Active Substance: OMALIZUMAB
     Route: 065
     Dates: start: 20201223
  6. ATIVAN [Concomitant]
     Active Substance: LORAZEPAM
     Indication: Product used for unknown indication
     Dosage: UNK
  7. ALVESCO [Concomitant]
     Active Substance: CICLESONIDE
  8. XARELTO [Concomitant]
     Active Substance: RIVAROXABAN
     Indication: Product used for unknown indication
  9. ROSUVASTATIN [Concomitant]
     Active Substance: ROSUVASTATIN
     Indication: Product used for unknown indication
     Dosage: UNK
  10. CALCIUM CASEINATE [Concomitant]
     Active Substance: CASEIN
     Indication: Product used for unknown indication
     Dosage: UNK
  11. PANTOPRAZOLE [Concomitant]
     Active Substance: PANTOPRAZOLE
     Indication: Product used for unknown indication
     Dosage: UNK
  12. UNIPHYL [Concomitant]
     Active Substance: THEOPHYLLINE ANHYDROUS
     Indication: Product used for unknown indication
     Route: 065
  13. SINGULAIR [Concomitant]
     Active Substance: MONTELUKAST SODIUM
     Indication: Product used for unknown indication
     Route: 065

REACTIONS (22)
  - Pneumonia [Unknown]
  - Condition aggravated [Unknown]
  - Product dose omission issue [Unknown]
  - Forced expiratory volume decreased [Recovering/Resolving]
  - Blood pressure increased [Unknown]
  - Energy increased [Unknown]
  - Blood pressure systolic increased [Unknown]
  - Weight decreased [Unknown]
  - Drug ineffective [Unknown]
  - Pulse abnormal [Unknown]
  - Thrombosis [Unknown]
  - Respiratory failure [Unknown]
  - Pulmonary thrombosis [Recovered/Resolved]
  - Obstructive airways disorder [Not Recovered/Not Resolved]
  - Forced expiratory flow decreased [Recovering/Resolving]
  - Fungal infection [Unknown]
  - Aspergillus infection [Unknown]
  - Pyrexia [Unknown]
  - Malaise [Unknown]
  - Forced vital capacity decreased [Unknown]
  - Asthma [Unknown]
  - Nasopharyngitis [Unknown]

NARRATIVE: CASE EVENT DATE: 20130815
